FAERS Safety Report 23494534 (Version 1)
Quarter: 2024Q1

REPORT INFORMATION
  Report Type: Spontaneous
  Country: FR (occurrence: FR)
  Receive Date: 20240207
  Receipt Date: 20240207
  Transmission Date: 20240410
  Serious: Yes (Hospitalization, Other)
  Sender: FDA-Public Use
  Company Number: None

PATIENT
  Age: 64 Year
  Sex: Male
  Weight: 64 kg

DRUGS (3)
  1. KEYTRUDA [Suspect]
     Active Substance: PEMBROLIZUMAB
     Indication: Lip and/or oral cavity cancer
     Dosage: 1 DOSAGE FORM, Q3W
     Route: 042
     Dates: start: 20231218, end: 20231218
  2. CARBOPLATIN [Suspect]
     Active Substance: CARBOPLATIN
     Indication: Lip and/or oral cavity cancer
     Dosage: 1 DOSAGE FORM, Q3W
     Route: 042
     Dates: start: 20231218, end: 20231218
  3. FLUOROURACIL [Suspect]
     Active Substance: FLUOROURACIL
     Indication: Lip and/or oral cavity cancer
     Dosage: 1 DOSAGE FORM, Q3W
     Route: 042
     Dates: start: 20231218, end: 20231218

REACTIONS (3)
  - Thrombocytopenia [Recovering/Resolving]
  - Erythema [Recovering/Resolving]
  - Mucosal inflammation [Recovering/Resolving]

NARRATIVE: CASE EVENT DATE: 20231221
